FAERS Safety Report 9122092 (Version 1)
Quarter: 2013Q1

REPORT INFORMATION
  Report Type: Report from Study
  Country: FR (occurrence: FR)
  Receive Date: 20130114
  Receipt Date: 20130114
  Transmission Date: 20140127
  Serious: Yes (Hospitalization)
  Sender: FDA-Public Use
  Company Number: FR-PFIZER INC-2013010632

PATIENT
  Age: 77 Year
  Sex: Female

DRUGS (1)
  1. TORISEL [Suspect]
     Indication: MANTLE CELL LYMPHOMA
     Dosage: 175 TO 75 MG, WEEKLY
     Dates: start: 20101012, end: 20101103

REACTIONS (3)
  - Urinary tract infection [Unknown]
  - Acinetobacter infection [Unknown]
  - Varicella [Unknown]
